FAERS Safety Report 7012275-3 (Version None)
Quarter: 2010Q3

REPORT INFORMATION
  Report Type: 
  Country: None (occurrence: None)
  Receive Date: 20100924
  Receipt Date: 20100921
  Transmission Date: 20110219
  Serious: No
  Sender: FDA-Public Use
  Company Number: DE-SANOFI-AVENTIS-2010SA040610

PATIENT
  Sex: Female
  Weight: 60 kg

DRUGS (4)
  1. ARAVA [Suspect]
     Indication: PRODUCT USED FOR UNKNOWN INDICATION
     Route: 048
     Dates: end: 20100101
  2. DECORTIN [Concomitant]
     Route: 048
     Dates: start: 20070101
  3. COLECALCIFEROL [Concomitant]
     Indication: OSTEOPOROSIS
     Route: 048
     Dates: start: 20070101
  4. JODTHYROX [Concomitant]
     Route: 048
     Dates: start: 20100101

REACTIONS (1)
  - DRUG EXPOSURE BEFORE PREGNANCY [None]
